FAERS Safety Report 9502110 (Version 1)
Quarter: 2013Q3

REPORT INFORMATION
  Report Type: Spontaneous
  Country: BR (occurrence: BR)
  Receive Date: 20130905
  Receipt Date: 20130905
  Transmission Date: 20140515
  Serious: Yes (Hospitalization, Other)
  Sender: FDA-Public Use
  Company Number: BR-ABBOTT-13P-020-1140833-00

PATIENT
  Age: 42 Year
  Sex: Male
  Weight: 77 kg

DRUGS (3)
  1. KALETRA 200/50 [Suspect]
     Indication: VIRAL INFECTION
     Dosage: FORM STRENGTH: 250 MG + 50 MG
     Route: 048
  2. TENOFOVIR DISOPROXIL FUMARATE [Concomitant]
     Indication: VIRAL INFECTION
     Route: 048
     Dates: start: 20130807
  3. LAMIVUDINE [Concomitant]
     Indication: VIRAL INFECTION
     Route: 048
     Dates: start: 20130807

REACTIONS (5)
  - Central nervous system lesion [Unknown]
  - Convulsion [Recovering/Resolving]
  - Diarrhoea [Not Recovered/Not Resolved]
  - Tinnitus [Unknown]
  - Headache [Recovered/Resolved]
